FAERS Safety Report 10302082 (Version 1)
Quarter: 2014Q3

REPORT INFORMATION
  Report Type: Spontaneous
  Country: US (occurrence: None)
  Receive Date: 20140710
  Receipt Date: 20140710
  Transmission Date: 20150326
  Serious: Yes (Other)
  Sender: FDA-Public Use
  Company Number: None

PATIENT
  Age: 38 Year
  Sex: Female
  Weight: 61.24 kg

DRUGS (2)
  1. SULFASALAZINE. [Suspect]
     Active Substance: SULFASALAZINE
     Indication: SPONDYLITIS
     Dosage: 2 PILLS TWICE (4 A DAY) DAILY BY MOUTH
     Route: 048
     Dates: start: 20140414, end: 20140513
  2. AZULFIDINE EN-TABS [Suspect]
     Active Substance: SULFASALAZINE

REACTIONS (3)
  - Upper gastrointestinal haemorrhage [None]
  - Unresponsive to stimuli [None]
  - Hepatic enzyme increased [None]

NARRATIVE: CASE EVENT DATE: 20140518
